FAERS Safety Report 6436170-3 (Version None)
Quarter: 2009Q4

REPORT INFORMATION
  Report Type: 
  Country: None (occurrence: None)
  Receive Date: 20091111
  Receipt Date: 20091027
  Transmission Date: 20100525
  Serious: Yes (Other)
  Sender: FDA-Public Use
  Company Number: US-PFIZER INC-2009295057

PATIENT
  Sex: Female

DRUGS (2)
  1. ESTRING [Suspect]
     Indication: ATROPHIC VULVOVAGINITIS
  2. PREMPRO [Suspect]
     Dosage: 0.45MG/1.5MG
     Route: 048

REACTIONS (6)
  - AXILLARY MASS [None]
  - BREAST MASS [None]
  - METRORRHAGIA [None]
  - OVARIAN CYST [None]
  - SURGERY [None]
  - UTERINE MASS [None]
